FAERS Safety Report 26069850 (Version 1)
Quarter: 2025Q4

REPORT INFORMATION
  Report Type: Spontaneous
  Country: US (occurrence: US)
  Receive Date: 20251120
  Receipt Date: 20251120
  Transmission Date: 20260118
  Serious: No
  Sender: CATALYST PHARMA
  Company Number: US-CATALYST PHARMACEUTICALS-US-CATA-25-01178

PATIENT
  Age: 2 Year
  Sex: Male
  Weight: 12.7 kg

DRUGS (7)
  1. AGAMREE [Suspect]
     Active Substance: VAMOROLONE
     Indication: Duchenne muscular dystrophy
     Dosage: 1.8 ML DAILY (6 MG PER KG PER DAY)
     Route: 048
     Dates: start: 20250620, end: 202508
  2. AGAMREE [Suspect]
     Active Substance: VAMOROLONE
     Dosage: 0.7 ML DAILY
     Route: 048
     Dates: start: 20250804, end: 202508
  3. AGAMREE [Suspect]
     Active Substance: VAMOROLONE
     Dosage: BEING WEANED OFF
     Route: 048
     Dates: start: 202508, end: 2025
  4. TYLENOL [Concomitant]
     Active Substance: ACETAMINOPHEN
     Indication: Pain
     Dosage: 325 MG AS NEEDED
     Route: 065
  5. TYLENOL [Concomitant]
     Active Substance: ACETAMINOPHEN
     Indication: Pyrexia
  6. IBUPROFEN [Concomitant]
     Active Substance: IBUPROFEN
     Indication: Pain
     Dosage: 200 MG AS NEEDED
     Route: 065
  7. IBUPROFEN [Concomitant]
     Active Substance: IBUPROFEN
     Indication: Pyrexia

REACTIONS (2)
  - Aggression [Not Recovered/Not Resolved]
  - COVID-19 [Not Recovered/Not Resolved]

NARRATIVE: CASE EVENT DATE: 20250601
